FAERS Safety Report 20439838 (Version 1)
Quarter: 2022Q1

REPORT INFORMATION
  Report Type: Spontaneous
  Country: US (occurrence: None)
  Receive Date: 20220207
  Receipt Date: 20220207
  Transmission Date: 20220423
  Serious: Yes (Death, Hospitalization)
  Sender: FDA-Public Use
  Company Number: 2022A060952

PATIENT
  Age: 74 Year
  Sex: Female

DRUGS (3)
  1. QUETIAPINE [Suspect]
     Active Substance: QUETIAPINE
     Route: 051
  2. PREGABALIN [Suspect]
     Active Substance: PREGABALIN
     Route: 051
  3. INSULIN NOS [Suspect]
     Active Substance: INSULIN NOS
     Route: 051

REACTIONS (1)
  - Toxicity to various agents [Fatal]
